FAERS Safety Report 8109971 (Version 2)
Quarter: 2012Q4

REPORT INFORMATION
  Report Type: 
  Country: US (occurrence: US)
  Receive Date: 20110829
  Receipt Date: 20121011
  Transmission Date: 20130627
  Serious: No
  Sender: FDA-Public Use
  Company Number: US-BIOGENIDEC-2009BI037542

PATIENT
  Age: 43 None
  Sex: Female

DRUGS (5)
  1. TYSABRI [Suspect]
     Indication: MULTIPLE SCLEROSIS
     Route: 042
     Dates: start: 20091007
  2. LISINOPRIL [Concomitant]
     Indication: HYPERTENSION
  3. VITAMIN B12 [Concomitant]
  4. MULTIVITAMINS [Concomitant]
  5. VITAMIN D [Concomitant]

REACTIONS (11)
  - Vision blurred [Not Recovered/Not Resolved]
  - Memory impairment [Not Recovered/Not Resolved]
  - Tremor [Not Recovered/Not Resolved]
  - Contusion [Recovered/Resolved]
  - Nuclear magnetic resonance imaging abnormal [Not Recovered/Not Resolved]
  - Hypothyroidism [Unknown]
  - Central nervous system lesion [Unknown]
  - Fatigue [Not Recovered/Not Resolved]
  - Hypertension [Recovered/Resolved]
  - Multiple sclerosis [Not Recovered/Not Resolved]
  - Stress [Unknown]
